FAERS Safety Report 7715973-9 (Version None)
Quarter: 2011Q3

REPORT INFORMATION
  Report Type: 
  Country: None (occurrence: None)
  Receive Date: 20110829
  Receipt Date: 20110817
  Transmission Date: 20111222
  Serious: Yes (Other)
  Sender: FDA-Public Use
  Company Number: CA-ELI_LILLY_AND_COMPANY-CA201106004273

PATIENT
  Age: 57 Year
  Sex: Female

DRUGS (5)
  1. FORTEO [Suspect]
     Indication: OSTEOPOROSIS
     Dosage: 20 UG, QD
     Route: 058
     Dates: start: 20100619
  2. FORTEO [Suspect]
     Dosage: 20 UG, QD
     Route: 058
  3. CALCIUM CARBONATE [Concomitant]
  4. ATARAX [Concomitant]
  5. PEPCID [Concomitant]

REACTIONS (3)
  - ANGINA PECTORIS [None]
  - ARTERIAL OCCLUSIVE DISEASE [None]
  - URINARY TRACT INFECTION [None]
